FAERS Safety Report 19156953 (Version 1)
Quarter: 2021Q2

REPORT INFORMATION
  Report Type: Spontaneous
  Country: US (occurrence: US)
  Receive Date: 20210420
  Receipt Date: 20210420
  Transmission Date: 20210717
  Serious: No
  Sender: FDA-Public Use
  Company Number: US-LEADINGPHARMA-US-2021LEASPO00137

PATIENT
  Sex: Female

DRUGS (1)
  1. HYDROCHLOROTHIAZIDE TABLETS USP [Suspect]
     Active Substance: HYDROCHLOROTHIAZIDE
     Indication: PRODUCT USED FOR UNKNOWN INDICATION
     Route: 065

REACTIONS (4)
  - Sleep disorder [Unknown]
  - Peripheral swelling [Unknown]
  - Inflammation [Unknown]
  - Muscle spasms [Unknown]
